FAERS Safety Report 9514241 (Version 1)
Quarter: 2013Q3

REPORT INFORMATION
  Report Type: Spontaneous
  Country: US (occurrence: US)
  Receive Date: 20130910
  Receipt Date: 20130910
  Transmission Date: 20140515
  Serious: No
  Sender: FDA-Public Use
  Company Number: US-009507513-1309USA003748

PATIENT
  Age: 50 Year
  Sex: Male

DRUGS (2)
  1. CARBIDOPA (+) LEVODOPA [Suspect]
     Indication: PARKINSON^S DISEASE
     Route: 048
  2. ROPINIROLE [Suspect]
     Indication: PARKINSON^S DISEASE

REACTIONS (1)
  - Somnolence [Unknown]
